FAERS Safety Report 6974598-3 (Version None)
Quarter: 2010Q3

REPORT INFORMATION
  Report Type: 
  Country: None (occurrence: None)
  Receive Date: 20100909
  Receipt Date: 20100909
  Transmission Date: 20110219
  Serious: No
  Sender: FDA-Public Use
  Company Number: None

PATIENT
  Age: 49 Year
  Sex: Male
  Weight: 86 kg

DRUGS (1)
  1. SULFAMETHOXAZOLE AND TRIMETHOPRIM [Suspect]
     Indication: STAPHYLOCOCCAL INFECTION
     Dosage: 800/160 MG BID PO
     Route: 048
     Dates: start: 20100726, end: 20100825

REACTIONS (5)
  - PRURITUS [None]
  - RASH [None]
  - SKIN LESION [None]
  - STAPHYLOCOCCAL INFECTION [None]
  - URTICARIA [None]
